FAERS Safety Report 17650784 (Version 1)
Quarter: 2020Q2

REPORT INFORMATION
  Report Type: Spontaneous
  Country: US (occurrence: US)
  Receive Date: 20200408
  Receipt Date: 20200408
  Transmission Date: 20200713
  Serious: No
  Sender: FDA-Public Use
  Company Number: US-LEXICON PHARMACEUTICALS, INC-20-1606-00256

PATIENT
  Age: 47 Year
  Sex: Male

DRUGS (3)
  1. OCTREOTIDE. [Concomitant]
     Active Substance: OCTREOTIDE
  2. PREGABALIN. [Concomitant]
     Active Substance: PREGABALIN
  3. XERMELO [Suspect]
     Active Substance: TELOTRISTAT ETHYL
     Indication: NEOPLASM MALIGNANT
     Dates: start: 20191101

REACTIONS (1)
  - Skin laceration [Unknown]
